FAERS Safety Report 8135459-X (Version None)
Quarter: 2012Q1

REPORT INFORMATION
  Report Type: 
  Country: None (occurrence: None)
  Receive Date: 20120214
  Receipt Date: 20120209
  Transmission Date: 20120608
  Serious: Yes (Other)
  Sender: FDA-Public Use
  Company Number: CH-ROCHE-786283

PATIENT
  Sex: Female
  Weight: 55 kg

DRUGS (4)
  1. IMODIUM [Concomitant]
  2. RECANCOSTAT [Concomitant]
     Dosage: FREQ: 1-0-0
  3. ZOMETA [Concomitant]
  4. VEMURAFENIB [Suspect]
     Indication: METASTATIC MALIGNANT MELANOMA
     Route: 048

REACTIONS (1)
  - MALIGNANT MELANOMA [None]
